FAERS Safety Report 7261950-4 (Version None)
Quarter: 2011Q1

REPORT INFORMATION
  Report Type: 
  Country: None (occurrence: None)
  Receive Date: 20110130
  Receipt Date: 20101213
  Transmission Date: 20110831
  Serious: No
  Sender: FDA-Public Use
  Company Number: US-ABBOTT-10P-163-0691252-00

PATIENT
  Age: 55 Year
  Sex: Male

DRUGS (10)
  1. LEXOPRIL [Concomitant]
     Indication: DEPRESSION
  2. OMEPRAZOLE [Concomitant]
     Indication: GASTROOESOPHAGEAL REFLUX DISEASE
  3. ALENDRONATE SODIUM [Concomitant]
     Indication: PRODUCT USED FOR UNKNOWN INDICATION
  4. PREDNISONE [Concomitant]
     Indication: PRODUCT USED FOR UNKNOWN INDICATION
  5. HUMIRA [Suspect]
     Indication: RHEUMATOID ARTHRITIS
     Dates: start: 20100601
  6. LEFLUNOMIDE [Concomitant]
     Indication: RHEUMATOID ARTHRITIS
     Dosage: EVERY OTHER DAY
  7. LAMOTRIGINE [Concomitant]
     Indication: DEPRESSION
  8. HYDROXYCHLOROQUINE [Concomitant]
     Indication: INFLAMMATION
     Dosage: ALTERNATING 1 TAB ONE DAY, 2 TABS THE NEXT DAY
  9. DIAZEPAM [Concomitant]
     Indication: DEPRESSION
  10. LEXOPRIL [Concomitant]
     Indication: ANXIETY

REACTIONS (3)
  - DRUG DOSE OMISSION [None]
  - JOINT STIFFNESS [None]
  - FEELING ABNORMAL [None]
